FAERS Safety Report 8478430-0 (Version None)
Quarter: 2012Q2

REPORT INFORMATION
  Report Type: 
  Country: None (occurrence: None)
  Receive Date: 20120629
  Receipt Date: 20120615
  Transmission Date: 20120825
  Serious: Yes (Death)
  Sender: FDA-Public Use
  Company Number: AT-VERTEX PHARMACEUTICALS INC.-AE-2012-009537

PATIENT
  Sex: Male
  Weight: 33.5 kg

DRUGS (4)
  1. PEG-INTRON [Concomitant]
     Indication: HEPATITIS C
     Route: 058
     Dates: start: 20111212, end: 20120511
  2. ASPIRIN [Concomitant]
     Route: 048
  3. RIBAVIRIN [Concomitant]
     Indication: HEPATITIS C
     Route: 048
     Dates: start: 20111212, end: 20120511
  4. INCIVO (TELAPREVIR) [Suspect]
     Indication: HEPATITIS C
     Route: 048
     Dates: start: 20120223, end: 20120511

REACTIONS (3)
  - SKIN NECROSIS [None]
  - LIVER DISORDER [None]
  - SKIN ULCER [None]
